FAERS Safety Report 8525318-2 (Version None)
Quarter: 2012Q3

REPORT INFORMATION
  Report Type: 
  Country: None (occurrence: None)
  Receive Date: 20120720
  Receipt Date: 20120718
  Transmission Date: 20120928
  Serious: Yes (Hospitalization, Other)
  Sender: FDA-Public Use
  Company Number: PHHO2011JP02399

PATIENT
  Sex: Male
  Weight: 60 kg

DRUGS (36)
  1. BLINDED ALISKIREN [Suspect]
     Indication: CARDIAC FAILURE
     Dosage: CODE NOT BROKEN
     Route: 048
     Dates: start: 20110127, end: 20110210
  2. ENALAPRIL MALEATE [Suspect]
     Indication: CARDIAC FAILURE
     Dosage: CODE NOT BROKEN
     Route: 048
     Dates: start: 20110127, end: 20110210
  3. EPLERENONE [Concomitant]
     Dosage: 50 MG, DAILY
     Route: 048
     Dates: start: 20110317
  4. LANSOPRAZOLE [Concomitant]
     Indication: GASTRITIS PROPHYLAXIS
     Dosage: 15 MG, UNK
     Route: 048
     Dates: start: 20080205
  5. DIART [Concomitant]
     Indication: CARDIAC FAILURE CHRONIC
     Dosage: 30 MG, UNK
     Route: 048
     Dates: start: 20120210
  6. DABIGATRAN ETEXILATE [Concomitant]
     Indication: CEREBRAL ARTERY EMBOLISM
     Dosage: 150 MG, UNK
     Route: 048
     Dates: start: 20120524
  7. PLETAL [Concomitant]
     Indication: CEREBRAL ARTERY EMBOLISM
     Dosage: 100 MG, UNK
     Route: 048
     Dates: start: 20100210
  8. LASIX [Concomitant]
     Indication: CARDIAC FAILURE CHRONIC
     Dosage: 40 MG, DAILY
     Route: 048
     Dates: start: 20100501
  9. ALPRAZOLAM [Concomitant]
     Dosage: 0.4 MG, DAILY
     Route: 048
     Dates: start: 20110219
  10. AZOPT [Concomitant]
     Indication: GLAUCOMA
     Dosage: 3 DF, UNK
     Dates: start: 20100202
  11. TRAVATAN Z [Concomitant]
     Indication: GLAUCOMA
     Dosage: 1 DF, UNK
     Route: 048
     Dates: start: 20100513
  12. AMIODARONE HYDROCHLORIDE [Concomitant]
     Indication: VENTRICULAR FIBRILLATION
     Dosage: 200 MG, UNK
     Route: 048
     Dates: start: 20100205
  13. ARICEPT [Concomitant]
     Indication: QUALITY OF LIFE DECREASED
     Dosage: 4 MG, UNK
     Route: 048
     Dates: start: 20120224
  14. DETANTOL [Concomitant]
     Dosage: UNK
     Route: 047
     Dates: start: 20110825
  15. HEPARIN CALCIUM [Concomitant]
  16. BLINDED ALISKIREN [Suspect]
     Dosage: CODE NOT BROKEN
     Route: 048
     Dates: start: 20110630
  17. WARFARIN SODIUM [Suspect]
     Dosage: 0.75 MG, UNK
     Route: 048
     Dates: start: 20110214, end: 20110302
  18. CARVEDILOL [Concomitant]
     Dosage: 2.5 MG, DAILY
     Dates: start: 20110630
  19. SENNOSIDE [Concomitant]
     Indication: CONSTIPATION
     Dosage: 36 MG, UNK
     Dates: start: 20080529
  20. WARFARIN SODIUM [Suspect]
     Dosage: 0.75 MG, UNK
     Route: 048
     Dates: start: 20110130
  21. CEPHADOL [Concomitant]
     Indication: DIZZINESS
     Dosage: 50 MG, UNK
     Dates: start: 20090409
  22. ALPRAZOLAM [Concomitant]
     Indication: GLAUCOMA
     Dosage: 0.4 MG, UNK
     Route: 048
     Dates: start: 20091119
  23. BLINDED NO TREATMENT RECEIVED [Suspect]
     Dosage: CODE NOT BROKEN
     Route: 048
     Dates: start: 20110630
  24. ENALAPRIL MALEATE [Suspect]
     Indication: CARDIAC FAILURE
     Dosage: 10 MG, QD
     Route: 048
     Dates: start: 20101112, end: 20101209
  25. BLINDED NO TREATMENT RECEIVED [Suspect]
     Indication: CARDIAC FAILURE
     Dosage: CODE NOT BROKEN
     Route: 048
     Dates: start: 20110127, end: 20110210
  26. CARVEDILOL [Concomitant]
     Indication: CARDIAC FAILURE CHRONIC
     Dosage: UNK
     Route: 048
     Dates: start: 20100210
  27. ALISKIREN [Suspect]
     Indication: CARDIAC FAILURE
     Dosage: 150 MG, QD
     Route: 048
     Dates: start: 20110107, end: 20110210
  28. ENALAPRIL MALEATE [Suspect]
     Dosage: 10 MG, QD
     Route: 048
     Dates: start: 20110106, end: 20110210
  29. WARFARIN SODIUM [Suspect]
     Dosage: 2 MG, UNK
     Route: 048
     Dates: start: 20110303
  30. WARFARIN SODIUM [Suspect]
     Dosage: 1 MG, UNK
     Route: 048
     Dates: start: 20110329
  31. EPLERENONE [Concomitant]
     Indication: CARDIAC FAILURE CHRONIC
     Dosage: 100 MG, DAILY
     Route: 048
     Dates: start: 20100617
  32. ENALAPRIL MALEATE [Suspect]
     Dosage: CODE NOT BROKEN
     Route: 048
     Dates: start: 20110630
  33. ENALAPRIL MALEATE [Suspect]
     Dosage: 20 MG, QD
     Route: 048
     Dates: start: 20101209, end: 20110105
  34. WARFARIN SODIUM [Suspect]
     Indication: CEREBRAL ARTERY EMBOLISM
     Dosage: 1.75 MG, UNK
     Route: 048
     Dates: start: 20100128, end: 20110129
  35. LASIX [Concomitant]
     Dosage: 20 MG, DAILY
     Route: 048
  36. LEVOTHYROXINE SODIUM [Concomitant]
     Indication: HYPOTHYROIDISM
     Dosage: 100 UG, UNK
     Route: 048
     Dates: start: 20100506

REACTIONS (16)
  - RENAL IMPAIRMENT [None]
  - BLOOD CREATININE INCREASED [None]
  - DYSURIA [None]
  - ASTHENIA [None]
  - URINARY TRACT INFECTION [None]
  - DECREASED APPETITE [None]
  - ARTHRALGIA [None]
  - PYELONEPHRITIS ACUTE [None]
  - STREPTOCOCCAL INFECTION [None]
  - CHILLS [None]
  - HEADACHE [None]
  - RENAL FAILURE ACUTE [None]
  - ABDOMINAL PAIN [None]
  - DEHYDRATION [None]
  - BLOOD UREA INCREASED [None]
  - CHOLANGITIS [None]
